FAERS Safety Report 4889566-5 (Version None)
Quarter: 2006Q1

REPORT INFORMATION
  Report Type: 
  Country: None (occurrence: None)
  Receive Date: 20060124
  Receipt Date: 20060112
  Transmission Date: 20060701
  Serious: Yes (Other)
  Sender: FDA-Public Use
  Company Number: ES-JNJFOC-20060103548

PATIENT
  Sex: Male

DRUGS (5)
  1. CONCERTA [Suspect]
     Route: 048
  2. CONCERTA [Suspect]
     Route: 048
  3. CONCERTA [Suspect]
     Route: 048
  4. SERTRALINE [Concomitant]
  5. SERTRALINE [Concomitant]
     Indication: ANXIETY

REACTIONS (3)
  - EOSINOPHILIA [None]
  - LEUKOPENIA [None]
  - THYROXINE DECREASED [None]
